FAERS Safety Report 7559476-3 (Version None)
Quarter: 2011Q2

REPORT INFORMATION
  Report Type: 
  Country: None (occurrence: None)
  Receive Date: 20110621
  Receipt Date: 20110613
  Transmission Date: 20111010
  Serious: Yes (Hospitalization)
  Sender: FDA-Public Use
  Company Number: IE-AMGEN-IRLSP2011030304

PATIENT
  Age: 81 Year
  Sex: Male

DRUGS (12)
  1. ASPIRIN [Concomitant]
  2. CORDARONE [Concomitant]
  3. ALDACTONE [Concomitant]
  4. NEURONTIN [Concomitant]
  5. FUROSEMIDE [Concomitant]
  6. DILZEM [Concomitant]
  7. RANITIDINE [Concomitant]
  8. CALOGEN                            /00371903/ [Concomitant]
  9. PRADAXA [Concomitant]
  10. ARANESP [Suspect]
     Indication: RENAL FAILURE CHRONIC
     Dosage: 30 A?G, QWK
     Route: 058
     Dates: start: 20101220
  11. MEGACE [Concomitant]
  12. CIPRAMIL                           /00582602/ [Concomitant]

REACTIONS (3)
  - INTESTINAL DILATATION [None]
  - INDURATION [None]
  - INTESTINAL OBSTRUCTION [None]
